FAERS Safety Report 14989600 (Version 1)
Quarter: 2018Q2

REPORT INFORMATION
  Report Type: Spontaneous
  Country: US (occurrence: US)
  Receive Date: 20180608
  Receipt Date: 20180608
  Transmission Date: 20180711
  Serious: No
  Sender: FDA-Public Use
  Company Number: US-BAUSCH-BL-2018-012012

PATIENT
  Sex: Male
  Weight: 97.61 kg

DRUGS (6)
  1. TESTOSTERONE. [Concomitant]
     Active Substance: TESTOSTERONE
     Indication: SEXUAL DYSFUNCTION
     Dosage: IN STOMACH
  2. OESTROGEN [Concomitant]
     Indication: SEXUAL DYSFUNCTION
  3. HCG [Concomitant]
     Active Substance: GONADOTROPHIN, CHORIONIC
     Indication: SEXUAL DYSFUNCTION
  4. ROPINIROLE. [Concomitant]
     Active Substance: ROPINIROLE
     Indication: SEXUAL DYSFUNCTION
  5. BUSPIRONE [Concomitant]
     Active Substance: BUSPIRONE HYDROCHLORIDE
     Indication: SEXUAL DYSFUNCTION
  6. ADDYI [Suspect]
     Active Substance: FLIBANSERIN
     Indication: SEXUAL DYSFUNCTION
     Dosage: AT NIGHT
     Route: 065
     Dates: start: 20170321

REACTIONS (3)
  - Intentional product misuse [Not Recovered/Not Resolved]
  - Therapeutic response unexpected [Not Recovered/Not Resolved]
  - No adverse event [Unknown]
